APPROVED DRUG PRODUCT: DEXTROMETHORPHAN POLISTIREX
Active Ingredient: DEXTROMETHORPHAN POLISTIREX
Strength: EQ 30MG HYDROBROMIDE/5ML
Dosage Form/Route: SUSPENSION, EXTENDED RELEASE;ORAL
Application: A203133 | Product #001
Applicant: AMNEAL PHARMACEUTICALS LLC
Approved: Jul 28, 2017 | RLD: No | RS: No | Type: OTC